FAERS Safety Report 4653246-1 (Version None)
Quarter: 2005Q2

REPORT INFORMATION
  Report Type: 
  Country: None (occurrence: None)
  Receive Date: 20050503
  Receipt Date: 20050420
  Transmission Date: 20051028
  Serious: Yes (Hospitalization, Other)
  Sender: FDA-Public Use
  Company Number: 2005065334

PATIENT
  Age: 35 Year
  Sex: Female

DRUGS (2)
  1. DIFLORASONE DIACETATE OINTMENT (DIFLORASONE DIACETATE) [Suspect]
     Indication: DERMATITIS
     Dosage: TRANSDERMAL
     Route: 062
  2. BECLOMETHASONE DIPROPIONATE [Concomitant]

REACTIONS (4)
  - DRUG EXPOSURE DURING PREGNANCY [None]
  - IMPETIGO HERPETIFORMIS [None]
  - PIGMENTATION DISORDER [None]
  - SKIN DISCOLOURATION [None]
